FAERS Safety Report 14963939 (Version 1)
Quarter: 2018Q2

REPORT INFORMATION
  Report Type: Spontaneous
  Country: US (occurrence: US)
  Receive Date: 20180601
  Receipt Date: 20180601
  Transmission Date: 20180711
  Serious: Yes (Other)
  Sender: FDA-Public Use
  Company Number: US-AKRON, INC.-2048869

PATIENT
  Sex: Male

DRUGS (1)
  1. THERATEARS LUBRICANT EYE DROPS [Suspect]
     Active Substance: CARBOXYMETHYLCELLULOSE SODIUM
     Route: 047

REACTIONS (4)
  - Ocular hyperaemia [Unknown]
  - Eye inflammation [Unknown]
  - Eye irritation [Unknown]
  - Foreign body in eye [Unknown]
